FAERS Safety Report 16043514 (Version 1)
Quarter: 2019Q1

REPORT INFORMATION
  Report Type: Spontaneous
  Country: IT (occurrence: IT)
  Receive Date: 20190306
  Receipt Date: 20190306
  Transmission Date: 20190418
  Serious: Yes (Other)
  Sender: FDA-Public Use
  Company Number: IT-JNJFOC-20190305325

PATIENT
  Age: 46 Year
  Sex: Female

DRUGS (4)
  1. CONTRAMAL [Suspect]
     Active Substance: TRAMADOL HYDROCHLORIDE
     Indication: SCIATICA
     Route: 065
     Dates: start: 20190117, end: 20190117
  2. URBASON [Suspect]
     Active Substance: METHYLPREDNISOLONE
     Indication: SCIATICA
     Route: 042
     Dates: start: 20190117, end: 20190117
  3. PLASIL [Suspect]
     Active Substance: METOCLOPRAMIDE HYDROCHLORIDE
     Indication: PRODUCT USED FOR UNKNOWN INDICATION
     Route: 065
     Dates: start: 20190117, end: 20190117
  4. KETOPROFEN. [Suspect]
     Active Substance: KETOPROFEN
     Indication: SCIATICA
     Route: 042
     Dates: start: 20190117, end: 20190117

REACTIONS (4)
  - Dyspnoea [Recovering/Resolving]
  - Erythema [Recovering/Resolving]
  - Bronchostenosis [Recovering/Resolving]
  - Hypersensitivity [Recovering/Resolving]

NARRATIVE: CASE EVENT DATE: 20190117
